FAERS Safety Report 7099226-0 (Version None)
Quarter: 2010Q4

REPORT INFORMATION
  Report Type: 
  Country: None (occurrence: None)
  Receive Date: 20101112
  Receipt Date: 20101101
  Transmission Date: 20110411
  Serious: Yes (Hospitalization)
  Sender: FDA-Public Use
  Company Number: CA-JNJFOC-20101101417

PATIENT
  Sex: Male
  Weight: 90 kg

DRUGS (11)
  1. REMICADE [Suspect]
     Indication: CROHN'S DISEASE
     Route: 042
  2. IMURAN [Concomitant]
  3. FOLIC ACID [Concomitant]
  4. PROPRANOLOL [Concomitant]
  5. PANTOLOC [Concomitant]
  6. AMITRIPTYLINE HCL [Concomitant]
  7. REMERON [Concomitant]
  8. METFORMIN [Concomitant]
  9. DILAUDID [Concomitant]
  10. ALTACE [Concomitant]
  11. GLICLAZIDE [Concomitant]

REACTIONS (1)
  - DIARRHOEA [None]
